FAERS Safety Report 4387538-0 (Version None)
Quarter: 2004Q2

REPORT INFORMATION
  Report Type: 
  Country: None (occurrence: None)
  Receive Date: 20040630
  Receipt Date: 20040505
  Transmission Date: 20050107
  Serious: No
  Sender: FDA-Public Use
  Company Number: US-GLAXOSMITHKLINE-A0509675A

PATIENT
  Age: 74 Year
  Sex: Female

DRUGS (2)
  1. ADVAIR HFA [Suspect]
     Dosage: 100MCG TWICE PER DAY
     Route: 055
     Dates: start: 20040301
  2. OXYGEN [Concomitant]

REACTIONS (3)
  - DRUG INEFFECTIVE [None]
  - DYSGEUSIA [None]
  - DYSPNOEA [None]
